FAERS Safety Report 8801952 (Version 3)
Quarter: 2012Q4

REPORT INFORMATION
  Report Type: 
  Country: US (occurrence: US)
  Receive Date: 20120921
  Receipt Date: 20121130
  Transmission Date: 20130627
  Serious: Yes (Other)
  Sender: FDA-Public Use
  Company Number: US-PFIZER INC-2012232204

PATIENT
  Age: 66 Year
  Sex: Male
  Weight: 95.24 kg

DRUGS (8)
  1. SUTENT [Suspect]
     Indication: RENAL CELL CARCINOMA
     Dosage: 50 mg, cyclic, daily (4 weeks on 2 weeks off)
     Route: 048
     Dates: start: 20120802, end: 20121029
  2. PRAVASTATIN [Concomitant]
     Indication: CHOLESTEROL HIGH
     Dosage: UNK, daily
  3. PREVACID [Concomitant]
     Dosage: 30 mg, 1x/day
  4. AMLODIPINE [Concomitant]
     Dosage: 10 mg, 1x/day
  5. AMLODIPINE [Concomitant]
     Dosage: 5 mg, 1x/day
  6. LISINOPRIL W/HYDROCHLOROTHIAZIDE [Concomitant]
     Dosage: 5 mg, 2x/day
  7. LISINOPRIL W/HYDROCHLOROTHIAZIDE [Concomitant]
     Dosage: 20/12.5 mg, 1x/day
  8. PRAVACHOL [Concomitant]
     Dosage: 40 mg, 1x/day

REACTIONS (1)
  - Hypertension [Not Recovered/Not Resolved]
